FAERS Safety Report 11698753 (Version 1)
Quarter: 2015Q4

REPORT INFORMATION
  Report Type: Spontaneous
  Country: US (occurrence: US)
  Receive Date: 20151104
  Receipt Date: 20151104
  Transmission Date: 20160304
  Serious: No
  Sender: FDA-Public Use
  Company Number: US-ELI_LILLY_AND_COMPANY-US201102001185

PATIENT
  Age: 57 Year
  Sex: Female

DRUGS (2)
  1. FORTEO [Suspect]
     Active Substance: TERIPARATIDE
     Dosage: UNK, UNKNOWN
     Dates: start: 201006
  2. FORTEO [Suspect]
     Active Substance: TERIPARATIDE
     Dosage: UNK, UNKNOWN
     Dates: start: 20040922, end: 20070718

REACTIONS (11)
  - Hypersensitivity [Unknown]
  - Dysstasia [Unknown]
  - Incorrect drug administration duration [Recovered/Resolved]
  - Musculoskeletal discomfort [Unknown]
  - Arthritis [Unknown]
  - Pain in extremity [Unknown]
  - Discomfort [Unknown]
  - Bone density decreased [Unknown]
  - Kyphosis [Unknown]
  - Back pain [Unknown]
  - Arthralgia [Unknown]

NARRATIVE: CASE EVENT DATE: 201001
